FAERS Safety Report 14742629 (Version 4)
Quarter: 2018Q4

REPORT INFORMATION
  Report Type: Spontaneous
  Country: US (occurrence: US)
  Receive Date: 20180410
  Receipt Date: 20181207
  Transmission Date: 20190204
  Serious: Yes (Other)
  Sender: FDA-Public Use
  Company Number: US-NEUROCRINE BIOSCIENCES INC.-2018NBI00980

PATIENT
  Sex: Female

DRUGS (21)
  1. BENZTROPINE. [Concomitant]
     Active Substance: BENZTROPINE
  2. LASIX [Concomitant]
     Active Substance: FUROSEMIDE
  3. BENADRYL [Concomitant]
     Active Substance: DIPHENHYDRAMINE HYDROCHLORIDE
  4. CALCIUM [Concomitant]
     Active Substance: CALCIUM
  5. INGREZZA [Suspect]
     Active Substance: VALBENAZINE
     Indication: TARDIVE DYSKINESIA
     Route: 048
     Dates: start: 201706
  6. GEMFIBROZIL. [Concomitant]
     Active Substance: GEMFIBROZIL
  7. CLOZARIL [Concomitant]
     Active Substance: CLOZAPINE
     Dosage: 50 MG IN THE MORNING IN 300 MG AT NIGHT
  8. METOPROLOL TARTRATE. [Concomitant]
     Active Substance: METOPROLOL TARTRATE
  9. DIGOXIN. [Concomitant]
     Active Substance: DIGOXIN
     Indication: HEART RATE IRREGULAR
  10. INGREZZA [Suspect]
     Active Substance: VALBENAZINE
     Route: 048
     Dates: start: 2017, end: 201803
  11. HCTZ [Concomitant]
     Active Substance: HYDROCHLOROTHIAZIDE
     Dosage: 37.5/25 MG
     Dates: start: 200808
  12. VITAMIN E [Concomitant]
     Active Substance: .ALPHA.-TOCOPHEROL
  13. POTASSIUM [Concomitant]
     Active Substance: POTASSIUM
  14. LASIX [Concomitant]
     Active Substance: FUROSEMIDE
     Dates: start: 201801
  15. SIMVASTATIN. [Concomitant]
     Active Substance: SIMVASTATIN
  16. FISH OIL [Concomitant]
     Active Substance: FISH OIL
  17. IBANDRONATE [Concomitant]
     Active Substance: IBANDRONATE SODIUM
  18. INGREZZA [Suspect]
     Active Substance: VALBENAZINE
     Route: 048
     Dates: start: 2018
  19. LACTULOSE. [Concomitant]
     Active Substance: LACTULOSE
     Dosage: 10G FOR15 ML
  20. ASPIRIN. [Concomitant]
     Active Substance: ASPIRIN
  21. SENNA [Concomitant]
     Active Substance: SENNA LEAF\SENNOSIDES\SENNOSIDES A AND B

REACTIONS (5)
  - Cardiac failure congestive [Not Recovered/Not Resolved]
  - Weight increased [Unknown]
  - Pulmonary hypertension [Unknown]
  - Malaise [Unknown]
  - Diastolic dysfunction [Unknown]

NARRATIVE: CASE EVENT DATE: 2017
